FAERS Safety Report 12240084 (Version 2)
Quarter: 2018Q1

REPORT INFORMATION
  Report Type: Spontaneous
  Country: DE (occurrence: DE)
  Receive Date: 20160405
  Receipt Date: 20180309
  Transmission Date: 20180508
  Serious: Yes (Hospitalization)
  Sender: FDA-Public Use
  Company Number: DE-ELI_LILLY_AND_COMPANY-DE201603009922

PATIENT
  Age: 71 Year
  Sex: Male

DRUGS (20)
  1. ABILIFY [Interacting]
     Active Substance: ARIPIPRAZOLE
     Dosage: 10 MG, UNKNOWN
     Route: 065
  2. TAVOR (LORAZEPAM) [Interacting]
     Active Substance: LORAZEPAM
     Indication: PRODUCT USED FOR UNKNOWN INDICATION
     Dosage: 1 MG, UNKNOWN
     Route: 065
     Dates: start: 20130103, end: 20130108
  3. TAVOR (LORAZEPAM) [Interacting]
     Active Substance: LORAZEPAM
     Dosage: 3 MG, UNKNOWN
     Route: 065
     Dates: start: 20130110, end: 20130116
  4. AKINETON [Concomitant]
     Active Substance: BIPERIDEN HYDROCHLORIDE
     Dosage: 4 MG, UNKNOWN
     Route: 065
     Dates: start: 20130116, end: 20130130
  5. AKINETON [Concomitant]
     Active Substance: BIPERIDEN HYDROCHLORIDE
     Dosage: 8 MG, UNKNOWN
     Route: 065
     Dates: start: 20130111, end: 20130115
  6. TAVOR (LORAZEPAM) [Interacting]
     Active Substance: LORAZEPAM
     Dosage: 1.5 MG, UNKNOWN
     Route: 065
     Dates: start: 20130117, end: 20130123
  7. ERGENYL CHRONO [Concomitant]
     Active Substance: VALPROIC ACID
     Dosage: 2000 MG, UNKNOWN
     Route: 065
  8. AKINETON [Concomitant]
     Active Substance: BIPERIDEN HYDROCHLORIDE
     Dosage: 4 MG, UNKNOWN
     Route: 065
     Dates: start: 20130110
  9. ABILIFY [Interacting]
     Active Substance: ARIPIPRAZOLE
     Dosage: 10 MG, UNKNOWN
     Route: 065
     Dates: start: 20130107, end: 20130109
  10. TAVOR (LORAZEPAM) [Interacting]
     Active Substance: LORAZEPAM
     Dosage: 2.5 MG, UNKNOWN
     Route: 065
     Dates: start: 20130116
  11. ABILIFY [Interacting]
     Active Substance: ARIPIPRAZOLE
     Indication: PRODUCT USED FOR UNKNOWN INDICATION
     Dosage: 5 MG, UNKNOWN
     Route: 065
     Dates: start: 20130104, end: 20130106
  12. ABILIFY [Interacting]
     Active Substance: ARIPIPRAZOLE
     Dosage: 20 MG, UNKNOWN
     Route: 065
     Dates: start: 20130111
  13. TAVOR (LORAZEPAM) [Interacting]
     Active Substance: LORAZEPAM
     Dosage: 1.5 MG, UNKNOWN
     Route: 065
     Dates: start: 20130109
  14. ERGENYL CHRONO [Concomitant]
     Active Substance: VALPROIC ACID
     Dosage: 1200 MG, UNKNOWN
     Route: 065
     Dates: start: 20130104, end: 20130129
  15. AKINETON [Concomitant]
     Active Substance: BIPERIDEN HYDROCHLORIDE
     Dosage: 2 MG, UNKNOWN
     Route: 065
     Dates: start: 20130131, end: 20130206
  16. ZYPREXA [Suspect]
     Active Substance: OLANZAPINE
     Indication: PRODUCT USED FOR UNKNOWN INDICATION
     Dosage: 20 MG, UNKNOWN
     Route: 065
     Dates: start: 20130108
  17. ZYPREXA [Interacting]
     Active Substance: OLANZAPINE
     Dosage: 15 MG, UNKNOWN
     Route: 065
     Dates: start: 20130109, end: 20130217
  18. ABILIFY [Interacting]
     Active Substance: ARIPIPRAZOLE
     Dosage: 15 MG, UNKNOWN
     Route: 065
     Dates: start: 20130112, end: 20130116
  19. ERGENYL CHRONO [Concomitant]
     Active Substance: VALPROIC ACID
     Dosage: 600 MG, UNKNOWN
     Route: 065
     Dates: start: 20130103, end: 20130103
  20. ABILIFY [Interacting]
     Active Substance: ARIPIPRAZOLE
     Dosage: 15 MG, UNKNOWN
     Route: 065
     Dates: start: 20130110

REACTIONS (3)
  - Parkinsonian gait [Recovered/Resolved]
  - Fall [Recovered/Resolved]
  - Drug interaction [Recovered/Resolved]

NARRATIVE: CASE EVENT DATE: 20130116
